FAERS Safety Report 9640251 (Version 2)
Quarter: 2014Q1

REPORT INFORMATION
  Report Type: Spontaneous
  Country: US (occurrence: US)
  Receive Date: 20131023
  Receipt Date: 20140207
  Transmission Date: 20141002
  Serious: No
  Sender: FDA-Public Use
  Company Number: US-PFIZER INC-2013300421

PATIENT
  Age: 69 Year
  Sex: Female
  Weight: 73 kg

DRUGS (19)
  1. SKELAXIN [Suspect]
     Indication: MUSCLE SPASMS
     Dosage: 800 MG, AS NEEDED TID
     Route: 048
  2. ARAVA [Concomitant]
     Indication: POLYARTHRITIS
     Dosage: 10 MG, 1X/DAY
     Route: 048
  3. ARAVA [Concomitant]
     Dosage: 10 MG, DAILY
     Route: 048
  4. COZAAR [Concomitant]
     Indication: HYPERTENSION
     Dosage: 100 MG, 1X/DAY
     Route: 048
  5. MS CONTIN [Concomitant]
     Indication: ARTHRALGIA
     Dosage: 15 MG, 3X/DAY (15MG TABLET EXTENDED RELEASE 12 HOUR)
     Route: 048
  6. WELLBUTRIN [Concomitant]
     Dosage: 75 MG, 2X/DAY
     Route: 048
  7. BUSPAR [Concomitant]
     Dosage: 5 MG, 3X/DAY
     Route: 048
  8. ATIVAN [Concomitant]
     Dosage: 1 MG, 1X/DAY (1/2 TABLET ORALLY QD PRN)
     Route: 048
  9. PROVENTIL INHALER [Concomitant]
     Dosage: UNK, 2 PUFFS INHALATION BID PRN
  10. LISINOPRIL [Concomitant]
     Dosage: 20 MG, 1X/DAY
     Route: 048
  11. ETANERCEPT [Concomitant]
     Dosage: 50 MG/ML, UNK 1 ML SUBCUTANEOUS ONCE A WEEK
     Route: 058
  12. PRILOSEC [Concomitant]
     Dosage: 20 MG, 1X/DAY
     Route: 048
  13. AMLODIPINE BESYLATE [Concomitant]
     Dosage: 2.5 MG, 1X/DAY
     Route: 048
  14. LASIX [Concomitant]
     Dosage: 20 MG, 1 TABLET DAILY ALTERNATING WITH 2 TABS DAILY Q DAY
     Route: 048
  15. CALCIUM [Concomitant]
     Dosage: 500-125MG WITH FOOD
     Route: 048
  16. ESTRING [Concomitant]
     Dosage: 2 MG, 1X/DAY 1 RING VAGINAL ONCE A DAY
     Route: 067
  17. CENTRUM SILVER [Concomitant]
     Dosage: UNK, AS DIRECTED
     Route: 048
  18. BIOTIN [Concomitant]
     Dosage: 1000 MG, 1X/DAY
     Route: 048
  19. CLARITIN [Concomitant]
     Dosage: 10 MG, AS NEEDED
     Route: 048

REACTIONS (2)
  - Lumbar spinal stenosis [Unknown]
  - Blood cholesterol increased [Unknown]
